FAERS Safety Report 16756795 (Version 2)
Quarter: 2020Q3

REPORT INFORMATION
  Report Type: Report from Study
  Country: NL (occurrence: NL)
  Receive Date: 20190829
  Receipt Date: 20190912
  Transmission Date: 20201104
  Serious: Yes (Hospitalization)
  Sender: FDA-Public Use
  Company Number: NL-JNJFOC-20190737964

PATIENT
  Age: 8 Decade
  Sex: Female

DRUGS (4)
  1. FENTANYL UNSPECIFIED [Concomitant]
     Active Substance: FENTANYL
     Indication: PAIN
     Dates: start: 20190405, end: 20190724
  2. DARATUMUMAB [Suspect]
     Active Substance: DARATUMUMAB
     Indication: PLASMA CELL MYELOMA
     Dosage: MOST RECENT DOSE: 01/AUG/2019
     Route: 042
     Dates: start: 20190718
  3. IXAZOMIB [Suspect]
     Active Substance: IXAZOMIB
     Indication: PLASMA CELL MYELOMA
     Dosage: MOST RECENT DOSE: 08/AUG/2019
     Route: 048
     Dates: start: 20190718
  4. DEXAMETHASONE. [Suspect]
     Active Substance: DEXAMETHASONE
     Indication: PLASMA CELL MYELOMA
     Dosage: MOST RECENT DOSE: 01/AUG/2019
     Route: 065
     Dates: start: 20190718

REACTIONS (5)
  - Vomiting [Recovered/Resolved]
  - Urinary retention [Unknown]
  - Nausea [Recovered/Resolved]
  - Dehydration [Recovered/Resolved]
  - Constipation [Unknown]

NARRATIVE: CASE EVENT DATE: 20190723
